FAERS Safety Report 4906935-5 (Version None)
Quarter: 2006Q1

REPORT INFORMATION
  Report Type: 
  Country: None (occurrence: None)
  Receive Date: 20060207
  Receipt Date: 20060131
  Transmission Date: 20060701
  Serious: No
  Sender: FDA-Public Use
  Company Number: 2006-137932-NL

PATIENT
  Age: 39 Year
  Sex: Female

DRUGS (3)
  1. MIRTAZAPINE [Suspect]
     Dosage: 15 MG BID
     Route: 048
     Dates: start: 20050901
  2. ZOPICLONE [Concomitant]
  3. ALPRAZOLAM [Concomitant]

REACTIONS (5)
  - DRY MOUTH [None]
  - HYPOTHYROIDISM [None]
  - SOMNOLENCE [None]
  - TACHYCARDIA [None]
  - WEIGHT INCREASED [None]
